FAERS Safety Report 7647742-2 (Version None)
Quarter: 2011Q3

REPORT INFORMATION
  Report Type: 
  Country: None (occurrence: None)
  Receive Date: 20110801
  Receipt Date: 20110801
  Transmission Date: 20111222
  Serious: Yes (Death, Life-Threatening, Hospitalization, Disabling, Congenital Anomaly, Other)
  Sender: FDA-Public Use
  Company Number: None

PATIENT
  Age: 29 Year
  Sex: Male
  Weight: 81.646 kg

DRUGS (5)
  1. ZOLPIDEM TARTRATE [Suspect]
     Indication: INSOMNIA
     Dosage: 5-10 MG
     Route: 048
     Dates: start: 20110729, end: 20110730
  2. ZOLPIDEM TARTRATE [Suspect]
     Indication: ANXIETY
     Dosage: 5-10 MG
     Route: 048
     Dates: start: 20110729, end: 20110730
  3. NEXIUM [Concomitant]
     Route: 048
  4. ZOLPIDEM [Concomitant]
     Route: 048
  5. LAMOTRIGINE [Concomitant]

REACTIONS (5)
  - INITIAL INSOMNIA [None]
  - RESTLESSNESS [None]
  - MUSCLE TWITCHING [None]
  - SOMNOLENCE [None]
  - PRURITUS [None]
